FAERS Safety Report 24360204 (Version 1)
Quarter: 2024Q3

REPORT INFORMATION
  Report Type: Spontaneous
  Country: US (occurrence: US)
  Receive Date: 20240925
  Receipt Date: 20240925
  Transmission Date: 20241016
  Serious: No
  Sender: ROCHE
  Company Number: US-ROCHE-10000088338

PATIENT
  Age: 51 Year
  Sex: Male
  Weight: 95.3 kg

DRUGS (1)
  1. EVRYSDI [Suspect]
     Active Substance: RISDIPLAM
     Indication: Spinal muscular atrophy
     Dosage: 100 ML BOTTLE
     Route: 048

REACTIONS (1)
  - Muscular weakness [Unknown]
